FAERS Safety Report 12628357 (Version 1)
Quarter: 2016Q3

REPORT INFORMATION
  Report Type: Spontaneous
  Country: US (occurrence: US)
  Receive Date: 20160808
  Receipt Date: 20160808
  Transmission Date: 20161109
  Serious: No
  Sender: FDA-Public Use
  Company Number: US-BEH-2016072059

PATIENT
  Sex: Female
  Weight: 89.34 kg

DRUGS (39)
  1. PANTOPRAZOLE [Concomitant]
     Active Substance: PANTOPRAZOLE SODIUM
  2. HYDROCHLOROTHIAZIDE. [Concomitant]
     Active Substance: HYDROCHLOROTHIAZIDE
  3. AZO [Concomitant]
     Active Substance: PHENAZOPYRIDINE HYDROCHLORIDE
  4. GAVISCON                           /00237601/ [Concomitant]
     Active Substance: ALUMINUM HYDROXIDE\MAGNESIUM CARBONATE
  5. FISH OIL [Concomitant]
     Active Substance: FISH OIL
  6. CLOTRIMAZOLE. [Concomitant]
     Active Substance: CLOTRIMAZOLE
  7. LEVOTHYROXINE. [Concomitant]
     Active Substance: LEVOTHYROXINE
  8. EPIPEN [Concomitant]
     Active Substance: EPINEPHRINE
  9. MONTELUKAST [Concomitant]
     Active Substance: MONTELUKAST SODIUM
  10. TAMIFLU [Concomitant]
     Active Substance: OSELTAMIVIR PHOSPHATE
  11. GUAIFENESIN AC [Concomitant]
     Active Substance: CODEINE PHOSPHATE\GUAIFENESIN
  12. SYMBICORT [Concomitant]
     Active Substance: BUDESONIDE\FORMOTEROL FUMARATE DIHYDRATE
  13. METOPROLOL. [Concomitant]
     Active Substance: METOPROLOL
  14. MELATONIN [Concomitant]
     Active Substance: MELATONIN
  15. KLOR-CON [Concomitant]
     Active Substance: POTASSIUM CHLORIDE
  16. LIDOCAINE/PRILOCAINE [Concomitant]
     Active Substance: LIDOCAINE\PRILOCAINE
  17. LOSARTAN. [Concomitant]
     Active Substance: LOSARTAN
  18. BUPROPION. [Concomitant]
     Active Substance: BUPROPION
  19. MIRALAX [Concomitant]
     Active Substance: POLYETHYLENE GLYCOL 3350
  20. PREDNISONE. [Concomitant]
     Active Substance: PREDNISONE
  21. ACIDOPHILUS [Concomitant]
     Active Substance: LACTOBACILLUS ACIDOPHILUS
  22. FLONASE [Concomitant]
     Active Substance: FLUTICASONE PROPIONATE
  23. LUTEIN                             /01638501/ [Concomitant]
     Active Substance: LUTEIN
  24. COMBIVENT [Concomitant]
     Active Substance: ALBUTEROL SULFATE\IPRATROPIUM BROMIDE
  25. OCUVITE [Concomitant]
     Active Substance: VITAMINS
  26. HIZENTRA [Suspect]
     Active Substance: HUMAN IMMUNOGLOBULIN G
     Indication: IMMUNODEFICIENCY COMMON VARIABLE
     Dosage: 20 G, QW
     Route: 058
     Dates: start: 20100519
  27. TYLENOL EXTRA STRENGTH [Concomitant]
     Active Substance: ACETAMINOPHEN
  28. CALTRATE WITH VITAMIN D [Concomitant]
     Active Substance: CALCIUM CARBONATE\CHOLECALCIFEROL
  29. PATADAY [Concomitant]
     Active Substance: OLOPATADINE HYDROCHLORIDE
  30. ACYCLOVIR                          /00587301/ [Concomitant]
     Active Substance: ACYCLOVIR
  31. COENZYME Q10 [Concomitant]
     Active Substance: UBIDECARENONE
  32. LMX                                /00033401/ [Concomitant]
  33. SIMVASTATIN. [Concomitant]
     Active Substance: SIMVASTATIN
  34. MAGNESIUM [Concomitant]
     Active Substance: MAGNESIUM
  35. GUAIFENESIN/CODEINE [Concomitant]
     Active Substance: CODEINE PHOSPHATE\GUAIFENESIN
  36. CEFTIN [Concomitant]
     Active Substance: CEFUROXIME AXETIL
  37. ASPIRIN. [Concomitant]
     Active Substance: ASPIRIN
  38. DIPHENHYDRAMINE. [Concomitant]
     Active Substance: DIPHENHYDRAMINE
  39. SPIRIVA [Concomitant]
     Active Substance: TIOTROPIUM BROMIDE MONOHYDRATE

REACTIONS (1)
  - Sinusitis [Unknown]
